FAERS Safety Report 10313125 (Version 6)
Quarter: 2015Q3

REPORT INFORMATION
  Report Type: Spontaneous
  Country: JP (occurrence: JP)
  Receive Date: 20140718
  Receipt Date: 20150820
  Transmission Date: 20151125
  Serious: Yes (Hospitalization)
  Sender: FDA-Public Use
  Company Number: JP-JNJFOC-20140709363

PATIENT
  Age: 75 Year
  Sex: Female
  Weight: 39 kg

DRUGS (6)
  1. PEGINTRON [Concomitant]
     Active Substance: PEGINTERFERON ALFA-2B
     Indication: CHRONIC HEPATITIS C
     Route: 058
     Dates: start: 20140502, end: 20140711
  2. LANDEL [Concomitant]
     Active Substance: UNSPECIFIED INGREDIENT
     Indication: HYPERTENSION
     Route: 048
  3. SOVRIAD [Suspect]
     Active Substance: SIMEPREVIR
     Indication: CHRONIC HEPATITIS C
     Route: 048
     Dates: start: 20140502, end: 20140711
  4. SELBEX [Concomitant]
     Active Substance: TEPRENONE
     Indication: GASTRITIS
     Route: 048
  5. GASTER [Concomitant]
     Active Substance: FAMOTIDINE
     Indication: GASTRITIS
     Route: 048
  6. REBETOL [Concomitant]
     Active Substance: RIBAVIRIN
     Indication: CHRONIC HEPATITIS C
     Route: 048
     Dates: start: 20140502, end: 20140711

REACTIONS (2)
  - Hepatic function abnormal [Recovered/Resolved]
  - Hepatitis C RNA increased [Unknown]

NARRATIVE: CASE EVENT DATE: 20140711
